FAERS Safety Report 11875498 (Version 1)
Quarter: 2015Q4

REPORT INFORMATION
  Report Type: Spontaneous
  Country: US (occurrence: None)
  Receive Date: 20151228
  Receipt Date: 20151228
  Transmission Date: 20160305
  Serious: Yes (Other)
  Sender: FDA-Public Use
  Company Number: None

PATIENT
  Age: 53 Year
  Sex: Male

DRUGS (1)
  1. ENBREL [Suspect]
     Active Substance: ETANERCEPT
     Indication: RHEUMATOID ARTHRITIS
     Dosage: 1 ML, EVERY 7 DAYS
     Route: 058
     Dates: start: 20150602, end: 20151223

REACTIONS (1)
  - Injection site bruising [None]

NARRATIVE: CASE EVENT DATE: 20151218
